FAERS Safety Report 25773988 (Version 2)
Quarter: 2025Q3

REPORT INFORMATION
  Report Type: Report from Study
  Country: RU (occurrence: RU)
  Receive Date: 20250908
  Receipt Date: 20250912
  Transmission Date: 20251020
  Serious: Yes (Death, Other)
  Sender: NOVARTIS
  Company Number: RU-002147023-NVSC2025RU139733

PATIENT
  Sex: Female
  Weight: 65 kg

DRUGS (3)
  1. RIBOCICLIB SUCCINATE [Suspect]
     Active Substance: RIBOCICLIB SUCCINATE
     Indication: Invasive ductal breast carcinoma
     Dosage: 600 MG, QD
     Route: 048
     Dates: start: 20250314, end: 20250330
  2. TAMOXIFEN [Concomitant]
     Active Substance: TAMOXIFEN
     Indication: Product used for unknown indication
     Dosage: 1 DOSAGE FORM, QD (PER TABLET)
     Route: 065
     Dates: start: 2022
  3. ANASTROZOLE [Concomitant]
     Active Substance: ANASTROZOLE
     Indication: Product used for unknown indication
     Route: 065
     Dates: start: 202307

REACTIONS (5)
  - Breast cancer stage IV [Fatal]
  - Metastasis [Fatal]
  - Vertigo [Not Recovered/Not Resolved]
  - Decreased appetite [Not Recovered/Not Resolved]
  - Vomiting [Not Recovered/Not Resolved]
